FAERS Safety Report 5723928-9 (Version None)
Quarter: 2008Q2

REPORT INFORMATION
  Report Type: 
  Country: None (occurrence: None)
  Receive Date: 20080425
  Receipt Date: 20080410
  Transmission Date: 20081010
  Serious: Yes (Hospitalization)
  Sender: FDA-Public Use
  Company Number: 013373

PATIENT
  Age: 46 Year
  Sex: Female
  Weight: 67.6 kg

DRUGS (13)
  1. VERELAN PM [Suspect]
     Indication: HEART RATE INCREASED
     Dosage: 100 MG, ONCE/DAY, ORAL
     Route: 048
     Dates: start: 20071019, end: 20071219
  2. RANITIDINE [Concomitant]
  3. Z-PAK (AZITHROMYCIN) [Concomitant]
  4. TRAZODONE HCL [Concomitant]
  5. TEMAZEPAM [Concomitant]
  6. SRONYX ORAL [Concomitant]
  7. CLOTRIMAZOLE [Concomitant]
  8. ALBUTEROL [Concomitant]
  9. ASPIRIN [Concomitant]
  10. AMOXICILLIN [Concomitant]
  11. BIRTH CONTROL PILL [Concomitant]
  12. ATIVAN [Concomitant]
  13. VITAMIN D [Concomitant]

REACTIONS (26)
  - ANXIETY [None]
  - ARTERIAL DISORDER [None]
  - ASTHENIA [None]
  - BACK PAIN [None]
  - BLOOD PRESSURE INCREASED [None]
  - BRONCHITIS [None]
  - CARBON DIOXIDE DECREASED [None]
  - CHEST DISCOMFORT [None]
  - CHEST PAIN [None]
  - CHILLS [None]
  - CHRONIC SINUSITIS [None]
  - DYSPNOEA [None]
  - FEELING ABNORMAL [None]
  - HEADACHE [None]
  - HYPOAESTHESIA [None]
  - INSOMNIA [None]
  - LIMB DISCOMFORT [None]
  - MUSCULAR WEAKNESS [None]
  - NASOPHARYNGITIS [None]
  - NAUSEA [None]
  - NON-CARDIAC CHEST PAIN [None]
  - PANIC ATTACK [None]
  - PHARYNGOLARYNGEAL PAIN [None]
  - THERAPEUTIC RESPONSE UNEXPECTED WITH DRUG SUBSTITUTION [None]
  - TREMOR [None]
  - VEIN DISORDER [None]
